FAERS Safety Report 10068710 (Version 2)
Quarter: 2014Q2

REPORT INFORMATION
  Report Type: Spontaneous
  Country: GB (occurrence: GB)
  Receive Date: 20140409
  Receipt Date: 20140409
  Transmission Date: 20141212
  Serious: Yes (Other)
  Sender: FDA-Public Use
  Company Number: GB-ASTELLAS-2014EU001957

PATIENT
  Age: 60 Year
  Sex: Female

DRUGS (2)
  1. VESICARE [Suspect]
     Indication: POLLAKIURIA
     Dosage: 5 MG, UID/QD
     Route: 048
     Dates: start: 20131202
  2. VESICARE [Suspect]
     Dosage: 10 MG, UID/QD
     Route: 065
     Dates: end: 20140219

REACTIONS (2)
  - Alopecia [Not Recovered/Not Resolved]
  - Constipation [Unknown]
